FAERS Safety Report 4631100-9 (Version None)
Quarter: 2005Q2

REPORT INFORMATION
  Report Type: 
  Country: None (occurrence: None)
  Receive Date: 20050406
  Receipt Date: 20050406
  Transmission Date: 20051028
  Serious: Yes (Life-Threatening, Hospitalization)
  Sender: FDA-Public Use
  Company Number: None

PATIENT
  Age: 43 Year
  Sex: Female
  Weight: 66.6788 kg

DRUGS (3)
  1. BETASERON [Suspect]
     Indication: MULTIPLE SCLEROSIS
     Dosage: .3 MG QOD
     Dates: start: 20000201, end: 20050301
  2. PROVIGIL [Concomitant]
  3. IMIPRAMINE [Concomitant]

REACTIONS (4)
  - CARDIOMYOPATHY [None]
  - DYSPNOEA [None]
  - FATIGUE [None]
  - PALPITATIONS [None]
